FAERS Safety Report 7954683-X (Version None)
Quarter: 2011Q4

REPORT INFORMATION
  Report Type: 
  Country: None (occurrence: None)
  Receive Date: 20111202
  Receipt Date: 20111130
  Transmission Date: 20120403
  Serious: Yes (Death, Other)
  Sender: FDA-Public Use
  Company Number: PHHY2011NZ71065

PATIENT
  Sex: Male
  Weight: 175 kg

DRUGS (5)
  1. LACTULOSE [Concomitant]
     Indication: CONSTIPATION
     Dosage: 20 ML PRN
     Route: 048
  2. FLUTICASONE PROPIONATE [Concomitant]
     Indication: ASTHMA
     Dosage: UNK UKN, UNK
     Dates: start: 20100526, end: 20110801
  3. SALBUTAMOL INHALER [Concomitant]
     Indication: ASTHMA
     Dosage: UNK UKN, UNK
     Dates: start: 20100516, end: 20110801
  4. METFORMIN HCL [Concomitant]
     Indication: TYPE 2 DIABETES MELLITUS
     Dosage: 1000 MG, TID
     Route: 048
     Dates: start: 20100526, end: 20110801
  5. CLOZARIL [Suspect]
     Indication: SCHIZOPHRENIA
     Dosage: 350 MG NOCTE
     Route: 048
     Dates: start: 20100313, end: 20110801

REACTIONS (8)
  - GAMMA-GLUTAMYLTRANSFERASE INCREASED [None]
  - BLOOD PROLACTIN DECREASED [None]
  - TRANSFERRIN INCREASED [None]
  - ANTIPSYCHOTIC DRUG LEVEL BELOW THERAPEUTIC [None]
  - DEATH [None]
  - GLYCOSYLATED HAEMOGLOBIN DECREASED [None]
  - C-REACTIVE PROTEIN INCREASED [None]
  - BLOOD THYROID STIMULATING HORMONE INCREASED [None]
